FAERS Safety Report 8052167-4 (Version None)
Quarter: 2012Q1

REPORT INFORMATION
  Report Type: 
  Country: None (occurrence: None)
  Receive Date: 20120118
  Receipt Date: 20120112
  Transmission Date: 20120608
  Serious: No
  Sender: FDA-Public Use
  Company Number: US-PFIZER INC-2012010482

PATIENT
  Sex: Male
  Weight: 147 kg

DRUGS (3)
  1. DETROL LA [Suspect]
     Indication: POLLAKIURIA
  2. DETROL LA [Suspect]
     Indication: BLADDER SPASM
     Dosage: 4 MG, 1X/DAY
     Route: 048
     Dates: start: 20110901
  3. SIMVASTATIN [Concomitant]
     Indication: BLOOD CHOLESTEROL ABNORMAL
     Dosage: 20 MG, 1X/DAY

REACTIONS (1)
  - DYSURIA [None]
